FAERS Safety Report 20664630 (Version 1)
Quarter: 2022Q2

REPORT INFORMATION
  Report Type: Spontaneous
  Country: US (occurrence: US)
  Receive Date: 20220401
  Receipt Date: 20220401
  Transmission Date: 20220720
  Serious: Yes (Other)
  Sender: FDA-Public Use
  Company Number: US-PFIZER INC-202200488872

PATIENT
  Age: 54 Year
  Sex: Male

DRUGS (1)
  1. SOLU-MEDROL [Suspect]
     Active Substance: METHYLPREDNISOLONE SODIUM SUCCINATE
     Indication: Multiple sclerosis
     Dosage: UNK

REACTIONS (16)
  - Cardiac flutter [Unknown]
  - Insomnia [Unknown]
  - Diarrhoea [Unknown]
  - Chills [Unknown]
  - Flushing [Unknown]
  - Fatigue [Unknown]
  - Nausea [Unknown]
  - Asthenia [Unknown]
  - Balance disorder [Unknown]
  - Ocular hyperaemia [Unknown]
  - Palpitations [Unknown]
  - Visual impairment [Unknown]
  - Heart rate increased [Unknown]
  - Heart rate decreased [Unknown]
  - Pruritus [Unknown]
  - Rash [Unknown]
